FAERS Safety Report 5671542-6 (Version None)
Quarter: 2008Q1

REPORT INFORMATION
  Report Type: 
  Country: None (occurrence: None)
  Receive Date: 20080318
  Receipt Date: 20080312
  Transmission Date: 20080703
  Serious: Yes (Hospitalization)
  Sender: FDA-Public Use
  Company Number: JP-BOEHRINGER INGELHEIM GMBH, GERMANY-2008-BP-03784RO

PATIENT
  Age: 79 Year
  Sex: Male

DRUGS (2)
  1. FUROSEMIDE [Suspect]
     Indication: CARDIAC FAILURE
  2. BETAMETHASONE BUTYRATE PROPIONATE [Concomitant]
     Indication: DRUG ERUPTION
     Route: 061

REACTIONS (1)
  - DRUG ERUPTION [None]
